FAERS Safety Report 6842445-6 (Version None)
Quarter: 2010Q3

REPORT INFORMATION
  Report Type: 
  Country: None (occurrence: None)
  Receive Date: 20100714
  Receipt Date: 20070727
  Transmission Date: 20110219
  Serious: No
  Sender: FDA-Public Use
  Company Number: US-PFIZER INC-2007063267

PATIENT
  Sex: Female

DRUGS (4)
  1. CHANTIX [Suspect]
     Indication: SMOKING CESSATION THERAPY
     Dates: start: 20070723
  2. PREVACID [Concomitant]
  3. LIPITOR [Concomitant]
  4. ALPRAZOLAM [Concomitant]

REACTIONS (1)
  - NAUSEA [None]
